FAERS Safety Report 8848598 (Version 1)
Quarter: 2012Q4

REPORT INFORMATION
  Report Type: 
  Country: FR (occurrence: FR)
  Receive Date: 20121018
  Receipt Date: 20121018
  Transmission Date: 20130627
  Serious: Yes (Hospitalization)
  Sender: FDA-Public Use
  Company Number: FR-ROCHE-769960

PATIENT
  Age: 67 Year
  Sex: Male

DRUGS (19)
  1. ROCEPHINE [Suspect]
     Indication: PRODUCT USED FOR UNKNOWN INDICATION
     Route: 042
     Dates: start: 20101019, end: 20101101
  2. ROCEPHINE [Suspect]
     Route: 042
     Dates: start: 20101108, end: 20101116
  3. VANCOMYCINE [Suspect]
     Indication: PRODUCT USED FOR UNKNOWN INDICATION
     Dosage: VANCOMYCINE MYLAN
     Route: 042
     Dates: start: 20101019, end: 20101029
  4. VANCOMYCINE [Suspect]
     Route: 042
     Dates: start: 20101101, end: 20101102
  5. VANCOMYCINE [Suspect]
     Route: 042
     Dates: start: 20101105, end: 20101109
  6. ERYTHROMYCIN [Suspect]
     Indication: PRODUCT USED FOR UNKNOWN INDICATION
     Route: 042
     Dates: start: 20101031, end: 20101101
  7. ERYTHROMYCIN [Suspect]
     Route: 042
     Dates: start: 20101103, end: 20101107
  8. ERYTHROMYCIN [Suspect]
     Route: 042
  9. BRICANYL [Suspect]
     Indication: PRODUCT USED FOR UNKNOWN INDICATION
     Route: 055
     Dates: start: 20101022, end: 20101029
  10. BRICANYL [Suspect]
     Route: 055
     Dates: start: 20101105, end: 20101110
  11. UMULINE [Concomitant]
     Route: 065
  12. ASPEGIC [Concomitant]
     Route: 065
  13. KARDEGIC [Concomitant]
  14. LASILIX [Concomitant]
     Route: 065
  15. BIVALIRUDIN [Concomitant]
     Route: 065
  16. EUPRESSYL [Concomitant]
     Route: 065
  17. TIENAM [Concomitant]
     Route: 065
  18. ULCAR [Concomitant]
     Route: 065
  19. OFLOCET [Concomitant]
     Route: 065

REACTIONS (8)
  - Rash [Recovered/Resolved]
  - Purpura [Recovered/Resolved]
  - Pruritus [Recovered/Resolved]
  - Erythema [None]
  - Rash maculo-papular [None]
  - Ecchymosis [None]
  - Eczema [None]
  - Vasculitis [None]
